FAERS Safety Report 26110283 (Version 2)
Quarter: 2025Q4

REPORT INFORMATION
  Report Type: Report from Study
  Country: EU (occurrence: EU)
  Receive Date: 20251202
  Receipt Date: 20251225
  Transmission Date: 20260117
  Serious: Yes (Hospitalization)
  Sender: ABBVIE
  Company Number: EU-ABBVIE-5801408

PATIENT
  Age: 62 Year
  Sex: Male

DRUGS (5)
  1. FOSCARBIDOPA\FOSLEVODOPA [Suspect]
     Active Substance: FOSCARBIDOPA\FOSLEVODOPA
     Indication: Parkinson^s disease
     Route: 058
     Dates: start: 202405, end: 202405
  2. FOSCARBIDOPA\FOSLEVODOPA [Suspect]
     Active Substance: FOSCARBIDOPA\FOSLEVODOPA
     Dosage: CRN: 0.30 ML/H, CR: 0.56 ML/H, CRH: 0.62 ML/H, ED: 0.30 ML
     Route: 058
     Dates: start: 20240524, end: 202405
  3. FOSCARBIDOPA\FOSLEVODOPA [Suspect]
     Active Substance: FOSCARBIDOPA\FOSLEVODOPA
     Route: 058
     Dates: start: 202405, end: 2024
  4. FOSCARBIDOPA\FOSLEVODOPA [Suspect]
     Active Substance: FOSCARBIDOPA\FOSLEVODOPA
     Route: 058
     Dates: start: 20240523, end: 202405
  5. FOSCARBIDOPA\FOSLEVODOPA [Suspect]
     Active Substance: FOSCARBIDOPA\FOSLEVODOPA
     Dosage: CRN: 0.30 ML/H, CR: 0.56 ML/H, CRH: 0.62 ML/H, ED: 0.30 ML,
     Route: 058
     Dates: start: 20240603

REACTIONS (9)
  - Stent placement [Recovered/Resolved]
  - On and off phenomenon [Recovered/Resolved]
  - Disturbance in attention [Recovered/Resolved]
  - Nausea [Recovered/Resolved]
  - On and off phenomenon [Recovered/Resolved]
  - Basal cell carcinoma [Recovered/Resolved]
  - Therapeutic product effect incomplete [Unknown]
  - Headache [Recovered/Resolved]
  - Asthenia [Unknown]

NARRATIVE: CASE EVENT DATE: 20240610
